FAERS Safety Report 6410899-5 (Version None)
Quarter: 2009Q4

REPORT INFORMATION
  Report Type: 
  Country: None (occurrence: None)
  Receive Date: 20091022
  Receipt Date: 20091019
  Transmission Date: 20100525
  Serious: Yes (Other)
  Sender: FDA-Public Use
  Company Number: US-GENENTECH-292144

PATIENT
  Age: 62 Year
  Sex: Male

DRUGS (13)
  1. RITUXAN [Suspect]
     Indication: NON-HODGKIN'S LYMPHOMA
     Dosage: UNK
     Dates: start: 20051012, end: 20060301
  2. RITUXAN [Suspect]
     Dosage: UNK
     Dates: start: 20081201, end: 20090421
  3. CYCLOPHOSPHAMIDE [Concomitant]
     Indication: NON-HODGKIN'S LYMPHOMA
     Dosage: UNK
     Dates: start: 20051012, end: 20060301
  4. DOXORUBICIN HCL [Concomitant]
     Indication: NON-HODGKIN'S LYMPHOMA
     Dosage: UNK
     Dates: start: 20051012, end: 20060301
  5. VINCRISTINE [Concomitant]
     Indication: NON-HODGKIN'S LYMPHOMA
     Dosage: UNK
     Dates: start: 20051012, end: 20060301
  6. PREDNISONE [Concomitant]
     Indication: NON-HODGKIN'S LYMPHOMA
     Dosage: UNK
     Dates: start: 20051012, end: 20060301
  7. IFOSFAMIDE [Concomitant]
     Indication: NON-HODGKIN'S LYMPHOMA
     Dosage: UNK
     Dates: start: 20081201, end: 20090421
  8. CARBOPLATIN [Concomitant]
     Indication: NON-HODGKIN'S LYMPHOMA
     Dosage: UNK
     Dates: start: 20081201, end: 20090421
  9. ETOPOSIDE [Concomitant]
     Indication: NON-HODGKIN'S LYMPHOMA
     Dosage: UNK
     Dates: start: 20081201, end: 20090421
  10. ETOPOSIDE [Concomitant]
     Dosage: UNK
     Dates: start: 20090606, end: 20090606
  11. METHYLPREDNISOLONE [Concomitant]
     Indication: NON-HODGKIN'S LYMPHOMA
     Dosage: UNK
     Dates: start: 20090606, end: 20090606
  12. CYTARABINE [Concomitant]
     Indication: NON-HODGKIN'S LYMPHOMA
     Dosage: UNK
     Dates: start: 20090606, end: 20090606
  13. CISPLATIN [Concomitant]
     Indication: NON-HODGKIN'S LYMPHOMA
     Dosage: UNK
     Dates: start: 20090606, end: 20090606

REACTIONS (3)
  - DISEASE PROGRESSION [None]
  - LYMPHOMA TRANSFORMATION [None]
  - PANCYTOPENIA [None]
